FAERS Safety Report 25613466 (Version 2)
Quarter: 2025Q3

REPORT INFORMATION
  Report Type: Report from Study
  Country: CA (occurrence: CA)
  Receive Date: 20250728
  Receipt Date: 20250924
  Transmission Date: 20251020
  Serious: Yes (Hospitalization, Other)
  Sender: TAKEDA
  Company Number: CA-TAKEDA-2024TUS077029

PATIENT
  Age: 71 Year
  Sex: Female

DRUGS (3)
  1. VEDOLIZUMAB [Suspect]
     Active Substance: VEDOLIZUMAB
     Indication: Crohn^s disease
  2. VEDOLIZUMAB [Suspect]
     Active Substance: VEDOLIZUMAB
     Indication: Crohn^s disease
     Dosage: 108 MILLIGRAM, Q2WEEKS
     Dates: start: 20240809
  3. VEDOLIZUMAB [Suspect]
     Active Substance: VEDOLIZUMAB
     Dosage: 108 MILLIGRAM, 1/WEEK
     Dates: start: 202507

REACTIONS (17)
  - Osteoarthritis [Unknown]
  - Peripheral swelling [Unknown]
  - Pulmonary embolism [Unknown]
  - Blindness unilateral [Unknown]
  - Drug ineffective [Unknown]
  - Device leakage [Unknown]
  - Lactose intolerance [Unknown]
  - Weight decreased [Unknown]
  - Dehydration [Unknown]
  - Diarrhoea [Unknown]
  - Eye inflammation [Unknown]
  - Off label use [Unknown]
  - Asthma [Unknown]
  - Fall [Unknown]
  - Injury [Unknown]
  - Malaise [Unknown]
  - Arthralgia [Unknown]

NARRATIVE: CASE EVENT DATE: 20240809
